FAERS Safety Report 10714502 (Version 1)
Quarter: 2015Q1

REPORT INFORMATION
  Report Type: Report from Study
  Country: US (occurrence: US)
  Receive Date: 20150115
  Receipt Date: 20150115
  Transmission Date: 20150721
  Serious: Yes (Disabling, Other)
  Sender: FDA-Public Use
  Company Number: US-BAYER-2014-165541

PATIENT
  Age: 76 Year
  Sex: Female

DRUGS (1)
  1. NEXAVAR [Suspect]
     Active Substance: SORAFENIB
     Indication: HEPATOCELLULAR CARCINOMA
     Dosage: 400 MG, BID
     Route: 048
     Dates: start: 20141008

REACTIONS (9)
  - Rash generalised [None]
  - Musculoskeletal stiffness [None]
  - Diarrhoea [None]
  - Weight decreased [None]
  - Fatigue [None]
  - Alopecia [None]
  - Pain in extremity [Not Recovered/Not Resolved]
  - Wheelchair user [None]
  - Fatigue [None]

NARRATIVE: CASE EVENT DATE: 201410
